FAERS Safety Report 24816751 (Version 1)
Quarter: 2025Q1

REPORT INFORMATION
  Report Type: Spontaneous
  Country: US (occurrence: US)
  Receive Date: 20250107
  Receipt Date: 20250107
  Transmission Date: 20250409
  Serious: No
  Sender: ABBVIE
  Company Number: US-ABBVIE-6071835

PATIENT
  Age: 63 Year
  Sex: Male
  Weight: 88.45 kg

DRUGS (11)
  1. NAMENDA [Suspect]
     Active Substance: MEMANTINE HYDROCHLORIDE
     Indication: Dementia
     Route: 048
     Dates: start: 2020, end: 2020
  2. LOSARTAN [Concomitant]
     Active Substance: LOSARTAN
     Indication: Hypertension
  3. BUDESONIDE [Concomitant]
     Active Substance: BUDESONIDE
     Indication: Pulmonary fibrosis
  4. FINASTERIDE [Concomitant]
     Active Substance: FINASTERIDE
     Indication: Prostatic disorder
  5. DULOXETINE [Concomitant]
     Active Substance: DULOXETINE
     Indication: Neuralgia
  6. PLAVIX [Concomitant]
     Active Substance: CLOPIDOGREL BISULFATE
     Indication: Anticoagulant therapy
  7. CALCIUM [Concomitant]
     Active Substance: CALCIUM
     Indication: Product used for unknown indication
  8. FLOMAX [Concomitant]
     Active Substance: TAMSULOSIN HYDROCHLORIDE
     Indication: Prostatic disorder
  9. TYLENOL [Concomitant]
     Active Substance: ACETAMINOPHEN
     Indication: Arthralgia
  10. ATORVASTATIN [Concomitant]
     Active Substance: ATORVASTATIN
     Indication: Product used for unknown indication
  11. VITAMIN D2 [Concomitant]
     Active Substance: ERGOCALCIFEROL
     Indication: Product used for unknown indication

REACTIONS (2)
  - Hypersensitivity [Recovered/Resolved]
  - Dizziness [Recovered/Resolved]

NARRATIVE: CASE EVENT DATE: 20200101
